FAERS Safety Report 11071458 (Version 2)
Quarter: 2015Q2

REPORT INFORMATION
  Report Type: Spontaneous
  Country: FR (occurrence: None)
  Receive Date: 20150424
  Receipt Date: 20150430
  Transmission Date: 20150821
  Serious: Yes (Other)
  Sender: FDA-Public Use
  Company Number: FR2015GSK050067

PATIENT
  Age: 30 Year
  Sex: Female

DRUGS (4)
  1. LAMIVUDINE (LAMIVUDINE) UNKNOWN [Suspect]
     Active Substance: LAMIVUDINE
     Indication: HIV TEST POSITIVE
  2. ABACAVIR (ABACAVIR SULPHATE) UNKNOWN [Suspect]
     Active Substance: ABACAVIR
     Indication: HIV TEST POSITIVE
  3. DARUNAVIR (DARUNAVIR) [Suspect]
     Active Substance: DARUNAVIR
     Indication: HIV TEST POSITIVE
  4. RITONAVIR (RITONAVIR) [Suspect]
     Active Substance: RITONAVIR
     Indication: HIV TEST POSITIVE

REACTIONS (3)
  - Cholestasis [None]
  - Caesarean section [None]
  - Maternal exposure during pregnancy [None]
